FAERS Safety Report 18126790 (Version 6)
Quarter: 2022Q2

REPORT INFORMATION
  Report Type: Report from Study
  Country: CA (occurrence: CA)
  Receive Date: 20200809
  Receipt Date: 20220623
  Transmission Date: 20220721
  Serious: Yes (Hospitalization, Other)
  Sender: FDA-Public Use
  Company Number: CA-ABBVIE-20K-028-3515065-00

PATIENT
  Sex: Female

DRUGS (2)
  1. HUMIRA [Suspect]
     Active Substance: ADALIMUMAB
     Indication: Crohn^s disease
     Route: 058
     Dates: start: 20090710, end: 20200802
  2. HUMIRA [Suspect]
     Active Substance: ADALIMUMAB
     Route: 058
     Dates: start: 20210306

REACTIONS (11)
  - Hernia [Unknown]
  - Ovarian oedema [Unknown]
  - Ileostomy [Unknown]
  - Intestinal resection [Unknown]
  - Postoperative wound infection [Recovered/Resolved]
  - Uterine mass [Not Recovered/Not Resolved]
  - Sjogren^s syndrome [Unknown]
  - Abdominal rigidity [Unknown]
  - Adnexa uteri pain [Unknown]
  - Abscess limb [Not Recovered/Not Resolved]
  - Postoperative wound infection [Recovered/Resolved]

NARRATIVE: CASE EVENT DATE: 20200101
